FAERS Safety Report 14309717 (Version 1)
Quarter: 2017Q4

REPORT INFORMATION
  Report Type: Report from Study
  Country: BR (occurrence: BR)
  Receive Date: 20171220
  Receipt Date: 20171220
  Transmission Date: 20180321
  Serious: Yes (Hospitalization)
  Sender: FDA-Public Use
  Company Number: BR-UCBSA-2017051122

PATIENT
  Age: 5 Year
  Sex: Male

DRUGS (2)
  1. LEVETIRACETAM. [Suspect]
     Active Substance: LEVETIRACETAM
     Indication: EPILEPSY
     Dosage: 3 ML IN THE MORNING, 1.5 ML IN THE AFTERNOON AND 3 ML AT NIGHT, 3X/DAY (TID)
     Dates: start: 20171001
  2. CARBAMAZEPINA [Concomitant]
     Active Substance: CARBAMAZEPINE
     Indication: PRODUCT USED FOR UNKNOWN INDICATION
     Dosage: UNK

REACTIONS (2)
  - Off label use [Unknown]
  - Brain neoplasm [Unknown]

NARRATIVE: CASE EVENT DATE: 201710
